FAERS Safety Report 23985428 (Version 6)
Quarter: 2024Q3

REPORT INFORMATION
  Report Type: Report from Study
  Country: US (occurrence: US)
  Receive Date: 20240618
  Receipt Date: 20240905
  Transmission Date: 20241017
  Serious: Yes (Other)
  Sender: NOVARTIS
  Company Number: US-002147023-NVSC2024US125819

PATIENT
  Age: 1 Year
  Sex: Male
  Weight: 5.442 kg

DRUGS (1)
  1. ZOLGENSMA [Suspect]
     Active Substance: ONASEMNOGENE ABEPARVOVEC-XIOI
     Indication: Spinal muscular atrophy
     Dosage: 1 MG/KG, ONCE/SINGLE,ONE SINGLE DOSE
     Route: 042
     Dates: start: 20240613, end: 20240613

REACTIONS (3)
  - Anaphylactic reaction [Recovering/Resolving]
  - Gait inability [Unknown]
  - Drug hypersensitivity [Recovered/Resolved]

NARRATIVE: CASE EVENT DATE: 20240613
